FAERS Safety Report 24233838 (Version 1)
Quarter: 2024Q3

REPORT INFORMATION
  Report Type: Spontaneous
  Country: US (occurrence: US)
  Receive Date: 20240821
  Receipt Date: 20240821
  Transmission Date: 20241017
  Serious: No
  Sender: BAYER
  Company Number: US-BAYER-2024A119626

PATIENT
  Sex: Female

DRUGS (1)
  1. MIRALAX [Suspect]
     Active Substance: POLYETHYLENE GLYCOL 3350
     Indication: Product used for unknown indication
     Dosage: THE FIRST FEW DAYS I TOOK 1/2 DOSE AND THE WENT UP TO THE FULL DOSE. DOSE
     Route: 048

REACTIONS (2)
  - Arthralgia [Unknown]
  - Oral pain [Unknown]
